FAERS Safety Report 5757567-0 (Version None)
Quarter: 2008Q2

REPORT INFORMATION
  Report Type: 
  Country: None (occurrence: None)
  Receive Date: 20080529
  Receipt Date: 20080513
  Transmission Date: 20081010
  Serious: Yes (Other)
  Sender: FDA-Public Use
  Company Number: JPI-P-003714

PATIENT
  Age: 16 Year
  Sex: Female

DRUGS (1)
  1. LUVOX [Suspect]
     Indication: DEPRESSION
     Dosage: 150 MG, 1 D, ORAL
     Route: 048
     Dates: start: 20080114

REACTIONS (3)
  - ABORTION SPONTANEOUS [None]
  - DRUG EXPOSURE DURING PREGNANCY [None]
  - PREGNANCY [None]
